FAERS Safety Report 6697295-0 (Version None)
Quarter: 2010Q2

REPORT INFORMATION
  Report Type: 
  Country: None (occurrence: None)
  Receive Date: 20100426
  Receipt Date: 20100420
  Transmission Date: 20101027
  Serious: No
  Sender: FDA-Public Use
  Company Number: JP-BAYER-201011312BYL

PATIENT
  Age: 82 Year
  Sex: Female
  Weight: 58 kg

DRUGS (8)
  1. CIPROXAN-I.V. [Suspect]
     Indication: PNEUMONIA
     Dosage: TOTAL DAILY DOSE: 600 MG  UNIT DOSE: 300 MG
     Route: 041
     Dates: start: 20080512, end: 20080519
  2. ISOTONIC SODIUM CHLORIDE SOLUTION [Concomitant]
     Dosage: TOTAL DAILY DOSE: 200 ML
     Route: 042
     Dates: start: 20080512, end: 20080519
  3. PERDIPINE [Concomitant]
     Route: 042
     Dates: start: 20080512, end: 20080513
  4. BISOLVON [Concomitant]
     Dosage: TOTAL DAILY DOSE: 12 MG
     Route: 042
     Dates: start: 20080512, end: 20080521
  5. GLYCERIN F [Concomitant]
     Dosage: TOTAL DAILY DOSE: 400 ML
     Route: 042
     Dates: start: 20080512, end: 20080513
  6. OMEPRAL [Concomitant]
     Dosage: TOTAL DAILY DOSE: 40 MG
     Route: 042
     Dates: start: 20080512, end: 20080520
  7. KAYTWO N [Concomitant]
     Dosage: TOTAL DAILY DOSE: 20 MG
     Route: 042
     Dates: start: 20080512, end: 20080512
  8. PANTOL [Concomitant]
     Dosage: TOTAL DAILY DOSE: 1000 MG
     Route: 042
     Dates: start: 20080518, end: 20080522

REACTIONS (1)
  - PLATELET COUNT DECREASED [None]
